FAERS Safety Report 10468341 (Version 1)
Quarter: 2014Q3

REPORT INFORMATION
  Report Type: Spontaneous
  Country: US (occurrence: US)
  Receive Date: 20140922
  Receipt Date: 20140922
  Transmission Date: 20150326
  Serious: No
  Sender: FDA-Public Use
  Company Number: US-BAXTER-2014BAX054161

PATIENT

DRUGS (1)
  1. PRISMASOL BK0/0/1.2 [Suspect]
     Active Substance: LACTIC ACID\MAGNESIUM CHLORIDE\SODIUM BICARBONATE\SODIUM CHLORIDE
     Indication: CONTINUOUS HAEMODIAFILTRATION
     Route: 010

REACTIONS (1)
  - Haemodialysis complication [Recovered/Resolved]

NARRATIVE: CASE EVENT DATE: 20140903
